FAERS Safety Report 9665021 (Version 3)
Quarter: 2013Q4

REPORT INFORMATION
  Report Type: Report from Study
  Country: NZ (occurrence: NZ)
  Receive Date: 20131101
  Receipt Date: 20131209
  Transmission Date: 20140711
  Serious: Yes (Other)
  Sender: FDA-Public Use
  Company Number: PHHY2013NZ118029

PATIENT
  Age: 34 Year
  Sex: Female

DRUGS (4)
  1. CLOZARIL [Suspect]
     Indication: SCHIZOPHRENIA
     Dosage: UNK
     Route: 048
     Dates: start: 20130625, end: 20130714
  2. VENLAFAXINE [Concomitant]
     Dosage: 150 MG, QD
     Route: 048
     Dates: start: 20131016
  3. DIAZEPAM [Concomitant]
     Dosage: 2 MG, QD (TDS)
     Route: 048
     Dates: start: 20131016
  4. EPILIM [Concomitant]
     Dosage: 1 G, QD
     Route: 048
     Dates: start: 20131018

REACTIONS (1)
  - Drug level fluctuating [Recovered/Resolved]
